FAERS Safety Report 21424289 (Version 1)
Quarter: 2022Q4

REPORT INFORMATION
  Report Type: Spontaneous
  Country: US (occurrence: US)
  Receive Date: 20221007
  Receipt Date: 20221007
  Transmission Date: 20230112
  Serious: Yes (Other)
  Sender: FDA-Public Use
  Company Number: US-PFIZER INC-202201206606

PATIENT
  Age: 82 Year
  Sex: Female
  Weight: 54.52 kg

DRUGS (2)
  1. PAXLOVID [Suspect]
     Active Substance: NIRMATRELVIR\RITONAVIR
     Indication: COVID-19 treatment
     Dosage: 3 DF, SINGLE (INITIALLY TOOK 3 TABLETS ONE TIME)
     Dates: start: 20220928, end: 20220928
  2. PAXLOVID [Suspect]
     Active Substance: NIRMATRELVIR\RITONAVIR
     Dosage: 2 DF, 2X/DAY
     Dates: start: 202209, end: 20220930

REACTIONS (14)
  - Asthenia [Not Recovered/Not Resolved]
  - Feeling abnormal [Unknown]
  - Loss of consciousness [Recovered/Resolved]
  - Malaise [Not Recovered/Not Resolved]
  - Dizziness [Unknown]
  - Muscle spasms [Recovered/Resolved]
  - Hypertension [Unknown]
  - Pyrexia [Unknown]
  - Cough [Unknown]
  - Secretion discharge [Unknown]
  - Product dispensing error [Unknown]
  - Incorrect dose administered [Unknown]
  - Off label use [Unknown]
  - Incorrect product administration duration [Unknown]

NARRATIVE: CASE EVENT DATE: 20220101
